FAERS Safety Report 9889467 (Version 2)
Quarter: 2014Q1

REPORT INFORMATION
  Report Type: Report from Study
  Country: US (occurrence: US)
  Receive Date: 20140211
  Receipt Date: 20140227
  Transmission Date: 20141002
  Serious: Yes (Hospitalization)
  Sender: FDA-Public Use
  Company Number: US-ACTELION-A-NJ2014-94434

PATIENT
  Age: 85 Year
  Sex: Female

DRUGS (2)
  1. TRACLEER [Suspect]
     Indication: PULMONARY ARTERIAL HYPERTENSION
     Dosage: UNK
     Route: 048
     Dates: start: 201209
  2. LASIX [Concomitant]
     Dosage: 40 MG, UNK

REACTIONS (3)
  - Renal impairment [Unknown]
  - Fluid retention [Unknown]
  - Blood pressure decreased [Unknown]
